FAERS Safety Report 9893245 (Version 3)
Quarter: 2014Q1

REPORT INFORMATION
  Report Type: Spontaneous
  Country: CA (occurrence: CA)
  Receive Date: 20140213
  Receipt Date: 20140304
  Transmission Date: 20141002
  Serious: Yes (Other)
  Sender: FDA-Public Use
  Company Number: CA-AMGEN-CANSP2013069448

PATIENT
  Age: 80 Year
  Sex: Female
  Weight: 79.4 kg

DRUGS (3)
  1. PROLIA [Suspect]
     Indication: OSTEOPOROSIS POSTMENOPAUSAL
     Dosage: 60 MG, Q6MO
     Route: 058
     Dates: start: 20110329
  2. RANITIDINE [Concomitant]
     Indication: GASTROOESOPHAGEAL REFLUX DISEASE
     Dosage: UNK
     Route: 048
  3. PROPAFENONE [Concomitant]
     Indication: ATRIAL FIBRILLATION
     Dosage: UNK
     Route: 048

REACTIONS (13)
  - Adenoma benign [Unknown]
  - Cellulitis [Unknown]
  - Diverticulitis [Unknown]
  - Renal mass [Unknown]
  - Arthralgia [Unknown]
  - Cystitis [Unknown]
  - Asthenia [Unknown]
  - Dry skin [Unknown]
  - Dermal cyst [Unknown]
  - Furuncle [Unknown]
  - Joint swelling [Unknown]
  - Sensitivity of teeth [Unknown]
  - Malaise [Unknown]
